FAERS Safety Report 18152028 (Version 5)
Quarter: 2021Q3

REPORT INFORMATION
  Report Type: Spontaneous
  Country: JP (occurrence: JP)
  Receive Date: 20200814
  Receipt Date: 20210701
  Transmission Date: 20211014
  Serious: Yes (Hospitalization)
  Sender: FDA-Public Use
  Company Number: JP-JNJFOC-20200812023

PATIENT
  Age: 64 Year
  Sex: Male
  Weight: 83.3 kg

DRUGS (3)
  1. TREMFYA [Suspect]
     Active Substance: GUSELKUMAB
  2. TREMFYA [Suspect]
     Active Substance: GUSELKUMAB
     Indication: ARTHRITIS
     Route: 058
     Dates: start: 20201214
  3. TREMFYA [Suspect]
     Active Substance: GUSELKUMAB
     Indication: PSORIASIS
     Route: 058
     Dates: start: 20180813, end: 20200511

REACTIONS (1)
  - Cholangiocarcinoma [Recovering/Resolving]

NARRATIVE: CASE EVENT DATE: 20200611
